FAERS Safety Report 7209973-5 (Version None)
Quarter: 2011Q1

REPORT INFORMATION
  Report Type: 
  Country: None (occurrence: None)
  Receive Date: 20110105
  Receipt Date: 20101229
  Transmission Date: 20110831
  Serious: No
  Sender: FDA-Public Use
  Company Number: US-BIOGENIDEC-2010BI045212

PATIENT
  Age: 34 Year
  Sex: Female

DRUGS (2)
  1. LYRICA [Concomitant]
     Dates: start: 20100101
  2. TYSABRI [Suspect]
     Indication: MULTIPLE SCLEROSIS
     Route: 042
     Dates: start: 20101101

REACTIONS (4)
  - BURNING SENSATION [None]
  - HEADACHE [None]
  - PRURITUS [None]
  - HYPOAESTHESIA [None]
